FAERS Safety Report 6268751-4 (Version None)
Quarter: 2009Q3

REPORT INFORMATION
  Report Type: 
  Country: None (occurrence: None)
  Receive Date: 20090713
  Receipt Date: 20090713
  Transmission Date: 20100115
  Serious: Yes (Other)
  Sender: FDA-Public Use
  Company Number: None

PATIENT
  Age: 43 Year
  Sex: Female
  Weight: 58.9676 kg

DRUGS (2)
  1. CYMBALTA [Suspect]
     Indication: ANXIETY
     Dates: start: 20070915, end: 20090711
  2. CYMBALTA [Suspect]
     Indication: DEPRESSION
     Dates: start: 20070915, end: 20090711

REACTIONS (4)
  - DRUG WITHDRAWAL SYNDROME [None]
  - HOT FLUSH [None]
  - NAUSEA [None]
  - VERTIGO [None]
